FAERS Safety Report 8175679-1 (Version None)
Quarter: 2012Q1

REPORT INFORMATION
  Report Type: 
  Country: None (occurrence: None)
  Receive Date: 20120301
  Receipt Date: 20120221
  Transmission Date: 20120608
  Serious: Yes (Other)
  Sender: FDA-Public Use
  Company Number: US-BIOGENIDEC-2011BI035576

PATIENT
  Sex: Male

DRUGS (4)
  1. AVONEX [Suspect]
     Route: 030
     Dates: start: 20110824
  2. AVONEX [Suspect]
     Route: 030
     Dates: start: 20100303, end: 20110301
  3. AVONEX [Suspect]
     Indication: MULTIPLE SCLEROSIS
     Route: 030
     Dates: start: 20020830, end: 20051102
  4. AVONEX [Suspect]
     Route: 030
     Dates: start: 20070328, end: 20081021

REACTIONS (7)
  - POST PROCEDURAL COMPLICATION [None]
  - MUSCLE SPASMS [None]
  - DRUG HYPERSENSITIVITY [None]
  - POOR QUALITY SLEEP [None]
  - CARDIAC FAILURE CONGESTIVE [None]
  - CARDIOMYOPATHY [None]
  - HYPERTENSION [None]
